FAERS Safety Report 5740067-1 (Version None)
Quarter: 2008Q2

REPORT INFORMATION
  Report Type: 
  Country: None (occurrence: None)
  Receive Date: 20080516
  Receipt Date: 20080509
  Transmission Date: 20081010
  Serious: Yes (Hospitalization)
  Sender: FDA-Public Use
  Company Number: PHHO2007US00552

PATIENT
  Age: 26 Year
  Sex: Female
  Weight: 56.4 kg

DRUGS (11)
  1. DESFERAL [Suspect]
     Indication: BLOOD IRON INCREASED
     Dosage: 1125 MG, QD
     Route: 048
     Dates: start: 20051215
  2. METHADONE HYDROCHLORIDE [Concomitant]
     Indication: SICKLE CELL ANAEMIA
  3. DILAUDID [Concomitant]
     Indication: SICKLE CELL ANAEMIA
  4. ALBUTEROL [Concomitant]
     Indication: ASTHMA
  5. FOLIC ACID [Concomitant]
  6. BENADRYL [Concomitant]
  7. TYLENOL [Concomitant]
  8. CLINDAMYCIN HCL [Concomitant]
  9. LACTULOSE [Concomitant]
  10. SENNA [Concomitant]
     Indication: CONSTIPATION
  11. ANTIBIOTICS FOR TOPICAL USE [Concomitant]
     Indication: SKIN ULCER

REACTIONS (3)
  - NAUSEA [None]
  - SICKLE CELL ANAEMIA WITH CRISIS [None]
  - VOMITING [None]
